FAERS Safety Report 7744096-8 (Version None)
Quarter: 2011Q3

REPORT INFORMATION
  Report Type: 
  Country: None (occurrence: None)
  Receive Date: 20110912
  Receipt Date: 20110902
  Transmission Date: 20111222
  Serious: Yes (Other)
  Sender: FDA-Public Use
  Company Number: US-AMGEN-USASP2011045393

PATIENT

DRUGS (1)
  1. ENBREL [Suspect]
     Dosage: 50 MG, QWK
     Route: 064
     Dates: start: 20010827, end: 20071101

REACTIONS (2)
  - PRENATAL SCREENING TEST ABNORMAL [None]
  - RESPIRATORY SYNCYTIAL VIRUS INFECTION [None]
